FAERS Safety Report 18372794 (Version 1)
Quarter: 2020Q4

REPORT INFORMATION
  Report Type: Spontaneous
  Country: CN (occurrence: CN)
  Receive Date: 20201012
  Receipt Date: 20201012
  Transmission Date: 20210114
  Serious: Yes (Life-Threatening)
  Sender: FDA-Public Use
  Company Number: CN-AMNEAL PHARMACEUTICALS-2020-AMRX-03156

PATIENT

DRUGS (2)
  1. CAPECITABINE. [Suspect]
     Active Substance: CAPECITABINE
     Indication: NASOPHARYNGEAL CANCER
     Dosage: 1000 MG/M^2, DAY1 TO 14 OF A 21 DAY CYCLE
     Route: 065
  2. APATINIB [Suspect]
     Active Substance: APATINIB
     Indication: NASOPHARYNGEAL CANCER
     Dosage: 500 MILLIGRAM, 1X/DAY
     Route: 065

REACTIONS (1)
  - Proteinuria [Unknown]
